FAERS Safety Report 7236072-9 (Version None)
Quarter: 2011Q1

REPORT INFORMATION
  Report Type: 
  Country: None (occurrence: None)
  Receive Date: 20110110
  Receipt Date: 20101230
  Transmission Date: 20110831
  Serious: Yes (Hospitalization)
  Sender: FDA-Public Use
  Company Number: 024736

PATIENT
  Sex: Female
  Weight: 32.7 kg

DRUGS (2)
  1. CERTOLIZUMAB PEGOL [Suspect]
     Indication: CROHN'S DISEASE
     Dosage: (400 MG 1X/2 WEEKS SUBCUTANEOUS) ; (200 MG 1/X4 WEEKS SUBCUTANEOUS)
     Route: 058
     Dates: start: 20100608
  2. CERTOLIZUMAB PEGOL [Suspect]
     Indication: CROHN'S DISEASE
     Dosage: (400 MG 1X/2 WEEKS SUBCUTANEOUS) ; (200 MG 1/X4 WEEKS SUBCUTANEOUS)
     Route: 058
     Dates: start: 20100101

REACTIONS (1)
  - GASTROENTERITIS VIRAL [None]
